FAERS Safety Report 20712247 (Version 2)
Quarter: 2022Q2

REPORT INFORMATION
  Report Type: Report from Study
  Country: US (occurrence: US)
  Receive Date: 20220414
  Receipt Date: 20220511
  Transmission Date: 20220721
  Serious: Yes (Hospitalization, Other)
  Sender: FDA-Public Use
  Company Number: US-BRISTOL-MYERS SQUIBB COMPANY-2022-017123

PATIENT
  Age: 72 Year
  Sex: Male

DRUGS (2)
  1. ABECMA [Suspect]
     Active Substance: IDECABTAGENE VICLEUCEL
     Indication: Product used for unknown indication
     Route: 065
     Dates: start: 20220323, end: 20220323
  2. ABECMA [Suspect]
     Active Substance: IDECABTAGENE VICLEUCEL
     Route: 065
     Dates: start: 20220323, end: 20220323

REACTIONS (2)
  - Neurotoxicity [Unknown]
  - Malaise [Unknown]

NARRATIVE: CASE EVENT DATE: 20220331
